FAERS Safety Report 9393726 (Version 1)
Quarter: 2013Q3

REPORT INFORMATION
  Report Type: Spontaneous
  Country: US (occurrence: US)
  Receive Date: 20130710
  Receipt Date: 20130710
  Transmission Date: 20140515
  Serious: No
  Sender: FDA-Public Use
  Company Number: US-009507513-1306USA014490

PATIENT
  Sex: Male

DRUGS (1)
  1. COPPERTONE DRY OIL CONTINUOUS SPRAY SPF 4 [Suspect]
     Indication: PRODUCT USED FOR UNKNOWN INDICATION
     Dosage: UNK, UNKNOWN
     Route: 061

REACTIONS (2)
  - Application site dryness [Unknown]
  - Drug ineffective [Unknown]
